FAERS Safety Report 6449197-2 (Version None)
Quarter: 2009Q4

REPORT INFORMATION
  Report Type: 
  Country: None (occurrence: None)
  Receive Date: 20091120
  Receipt Date: 20091115
  Transmission Date: 20100525
  Serious: Yes (Other)
  Sender: FDA-Public Use
  Company Number: PHHY2009IL49983

PATIENT
  Age: 40 Year
  Sex: Male

DRUGS (1)
  1. SEBIVO [Suspect]
     Indication: HEPATITIS B
     Dosage: UNK
     Route: 048
     Dates: end: 20091112

REACTIONS (2)
  - NEUROPATHY PERIPHERAL [None]
  - PARAESTHESIA [None]
